FAERS Safety Report 8401303 (Version 2)
Quarter: 2015Q2

REPORT INFORMATION
  Report Type: Spontaneous
  Country: US (occurrence: US)
  Receive Date: 20120210
  Receipt Date: 20150424
  Transmission Date: 20150821
  Serious: Yes (Other)
  Sender: FDA-Public Use
  Company Number: US-ROCHE-794156

PATIENT
  Sex: Male
  Weight: 99.88 kg

DRUGS (2)
  1. ACCUTANE [Suspect]
     Active Substance: ISOTRETINOIN
     Indication: ACNE
     Route: 065
     Dates: start: 1999, end: 2000
  2. ACCUTANE [Suspect]
     Active Substance: ISOTRETINOIN
     Route: 065

REACTIONS (7)
  - Irritable bowel syndrome [Unknown]
  - Gastrointestinal ulcer [Unknown]
  - Gastrointestinal disorder [Unknown]
  - Prostatitis [Unknown]
  - Inflammatory bowel disease [Unknown]
  - Arthritis [Unknown]
  - Depression [Unknown]

NARRATIVE: CASE EVENT DATE: 2002
